FAERS Safety Report 24647569 (Version 1)
Quarter: 2024Q4

REPORT INFORMATION
  Report Type: Report from Study
  Country: US (occurrence: US)
  Receive Date: 20241121
  Receipt Date: 20241121
  Transmission Date: 20250115
  Serious: Yes (Hospitalization, Other)
  Sender: VALIDUS
  Company Number: US-VALIDUS PHARMACEUTICALS LLC-US-VDP-2024-019469

PATIENT

DRUGS (4)
  1. LASIX [Suspect]
     Active Substance: FUROSEMIDE
     Indication: Cardiac failure congestive
     Dosage: UNK
     Route: 065
     Dates: start: 2024
  2. XERMELO [Suspect]
     Active Substance: TELOTRISTAT ETHYL
     Indication: Carcinoid syndrome
     Dosage: 250 MG, BID
     Route: 048
     Dates: start: 20230623
  3. XERMELO [Suspect]
     Active Substance: TELOTRISTAT ETHYL
     Dosage: 250 MG
     Route: 048
  4. XERMELO [Suspect]
     Active Substance: TELOTRISTAT ETHYL
     Dosage: 250 MG, BID
     Route: 048

REACTIONS (12)
  - Urinary tract infection [Unknown]
  - Unevaluable event [Unknown]
  - Fall [Unknown]
  - Dyspnoea [Unknown]
  - Abdominal pain upper [Unknown]
  - Joint dislocation [Recovering/Resolving]
  - Humerus fracture [Recovering/Resolving]
  - Vomiting [Unknown]
  - Contrast media allergy [Unknown]
  - Peripheral swelling [Unknown]
  - Intentional dose omission [Unknown]
  - Diarrhoea [Not Recovered/Not Resolved]

NARRATIVE: CASE EVENT DATE: 20240101
